FAERS Safety Report 22226872 (Version 1)
Quarter: 2023Q2

REPORT INFORMATION
  Report Type: Spontaneous
  Country: CN (occurrence: CN)
  Receive Date: 20230419
  Receipt Date: 20230419
  Transmission Date: 20230722
  Serious: Yes (Hospitalization, Other)
  Sender: FDA-Public Use
  Company Number: None

PATIENT
  Age: 69 Year
  Sex: Male
  Weight: 47.5 kg

DRUGS (12)
  1. CYCLOPHOSPHAMIDE [Suspect]
     Active Substance: CYCLOPHOSPHAMIDE
     Indication: Acute lymphocytic leukaemia
     Dosage: 0.87 G, QD, DILUTED WITH SODIUM CHLORIDE (250 ML) (D1,15), ROUTE: INTRA-PUMP INJECTION
     Route: 050
     Dates: start: 20230314, end: 20230314
  2. CYCLOPHOSPHAMIDE [Suspect]
     Active Substance: CYCLOPHOSPHAMIDE
     Indication: Philadelphia chromosome positive
  3. CYCLOPHOSPHAMIDE [Suspect]
     Active Substance: CYCLOPHOSPHAMIDE
     Indication: B-cell type acute leukaemia
  4. SODIUM CHLORIDE [Suspect]
     Active Substance: SODIUM CHLORIDE
     Indication: Medication dilution
     Dosage: 250 ML, QD, USED TO DILUTE CYCLOPHOSPHAMIDE (0.87 G) (D1,15), ROUTE: INTRA-PUMP INJECTION
     Route: 050
     Dates: start: 20230314, end: 20230314
  5. SODIUM CHLORIDE [Suspect]
     Active Substance: SODIUM CHLORIDE
     Dosage: 100 ML, QD FOR 1 HOUR, USED TO DILUTE DAUNORUBICIN HYDROCHLORIDE (65 MG) (D1-3), ROUTE: INTRA-PUMP I
     Route: 050
     Dates: start: 20230314, end: 20230314
  6. SODIUM CHLORIDE [Suspect]
     Active Substance: SODIUM CHLORIDE
     Dosage: 30 ML, QD FOR 30 MIN, USED TO DILUTE VINCRISTINE SULFATE (2 MG) (D1,8), ROUTE: INTRA-PUMP INJECTION
     Route: 050
     Dates: start: 20230314, end: 20230314
  7. DAUNORUBICIN HYDROCHLORIDE [Suspect]
     Active Substance: DAUNORUBICIN HYDROCHLORIDE
     Indication: Acute lymphocytic leukaemia
     Dosage: 65 MG, QD FOR 1 HOUR, DILUTED WITH SODIUM CHLORIDE (100 ML) (D1-3), ROUTE: INTRA-PUMP INJECTION
     Route: 050
     Dates: start: 20230314, end: 20230314
  8. DAUNORUBICIN HYDROCHLORIDE [Suspect]
     Active Substance: DAUNORUBICIN HYDROCHLORIDE
     Indication: Philadelphia chromosome positive
  9. DAUNORUBICIN HYDROCHLORIDE [Suspect]
     Active Substance: DAUNORUBICIN HYDROCHLORIDE
     Indication: B-cell type acute leukaemia
  10. VINCRISTINE SULFATE [Suspect]
     Active Substance: VINCRISTINE SULFATE
     Indication: Acute lymphocytic leukaemia
     Dosage: 2 MG, QD FOR 30 MIN, DILUTED WITH SODIUM CHLORIDE (30 ML), ROUTE: INTRA-PUMP INJECTION, D1,8
     Route: 050
     Dates: start: 20230314, end: 20230314
  11. VINCRISTINE SULFATE [Suspect]
     Active Substance: VINCRISTINE SULFATE
     Indication: Philadelphia chromosome positive
  12. VINCRISTINE SULFATE [Suspect]
     Active Substance: VINCRISTINE SULFATE
     Indication: B-cell type acute leukaemia

REACTIONS (1)
  - Myelosuppression [Recovering/Resolving]

NARRATIVE: CASE EVENT DATE: 20230325
